FAERS Safety Report 7464392-1 (Version None)
Quarter: 2011Q1

REPORT INFORMATION
  Report Type: 
  Country: None (occurrence: None)
  Receive Date: 20110302
  Receipt Date: 20101108
  Transmission Date: 20110831
  Serious: Yes (Death)
  Sender: FDA-Public Use
  Company Number: 163-21880-10091567

PATIENT
  Age: 71 Year
  Sex: Female

DRUGS (14)
  1. WARFARIN (WARFARIN) [Concomitant]
  2. BUMETANIDE [Concomitant]
  3. VITAMIN D [Concomitant]
  4. MUCINEX [Concomitant]
  5. REVLIMID [Suspect]
     Indication: MULTIPLE MYELOMA
     Dosage: 10 MG, DAILY X 21 DAYS, PO
     Route: 048
     Dates: start: 20081101, end: 20100901
  6. AMITRIPTYLINE HCL [Concomitant]
  7. FLUCONAZOLE [Concomitant]
  8. RESTASIS (CICLOSPORIN) [Concomitant]
  9. PRILOSEC [Concomitant]
  10. FENTANYL [Concomitant]
  11. ACYCLOVIR [Concomitant]
  12. ALPRAZOLAM [Concomitant]
  13. KLOR-CON [Concomitant]
  14. ZOMETA [Concomitant]

REACTIONS (2)
  - PANCYTOPENIA [None]
  - MULTIPLE MYELOMA [None]
